FAERS Safety Report 13239101 (Version 2)
Quarter: 2017Q1

REPORT INFORMATION
  Report Type: Spontaneous
  Country: US (occurrence: US)
  Receive Date: 20170216
  Receipt Date: 20170224
  Transmission Date: 20170428
  Serious: Yes (Hospitalization)
  Sender: FDA-Public Use
  Company Number: US-UNITED THERAPEUTICS-UNT-2017-001870

PATIENT
  Sex: Male

DRUGS (2)
  1. REMODULIN [Suspect]
     Active Substance: TREPROSTINIL
     Dosage: 0.0764 ?G/KG, CONTINUING
     Route: 058
     Dates: start: 20170213
  2. REMODULIN [Suspect]
     Active Substance: TREPROSTINIL
     Indication: PULMONARY ARTERIAL HYPERTENSION
     Dosage: 0.071 ?G/KG, CONTINUING
     Route: 058
     Dates: start: 20161223

REACTIONS (2)
  - Neurosurgery [Unknown]
  - Device malfunction [Unknown]

NARRATIVE: CASE EVENT DATE: 20170206
